FAERS Safety Report 8174432-2 (Version None)
Quarter: 2012Q1

REPORT INFORMATION
  Report Type: 
  Country: None (occurrence: None)
  Receive Date: 20120229
  Receipt Date: 20120221
  Transmission Date: 20120608
  Serious: Yes (Hospitalization, Other)
  Sender: FDA-Public Use
  Company Number: RU-BAYER-2012-018026

PATIENT
  Age: 26 Year
  Sex: Female

DRUGS (1)
  1. ESTRADIOL VALERATE/DIENOGEST [Suspect]
     Indication: CONTRACEPTION
     Dosage: 1 DF, QD
     Route: 048
     Dates: start: 20110901, end: 20111201

REACTIONS (6)
  - ALANINE AMINOTRANSFERASE INCREASED [None]
  - OCULAR ICTERUS [None]
  - RASH [None]
  - EPIGASTRIC DISCOMFORT [None]
  - HEPATITIS TOXIC [None]
  - MALAISE [None]
